FAERS Safety Report 5657525 (Version 19)
Quarter: 2013Q2

REPORT INFORMATION
  Report Type: Spontaneous
  Country: US (occurrence: US)
  Receive Date: 20041103
  Receipt Date: 20130430
  Transmission Date: 20140414
  Serious: Yes (Hospitalization, Other)
  Sender: FDA-Public Use
  Company Number: US-ROCHE-384943

PATIENT
  Age: 29 Year
  Sex: Male
  Weight: 66.7 kg

DRUGS (1)
  1. ACCUTANE [Suspect]
     Indication: ACNE
     Route: 048
     Dates: start: 19981130, end: 19990415

REACTIONS (28)
  - Gastrointestinal haemorrhage [Unknown]
  - Dyspnoea [Unknown]
  - Dyspnoea [Unknown]
  - Somnolence [Unknown]
  - Dizziness [Unknown]
  - Inflammatory bowel disease [Unknown]
  - Haematochezia [Unknown]
  - Abdominal pain [Unknown]
  - Colitis [Unknown]
  - Rectal haemorrhage [Unknown]
  - Intestinal haemorrhage [Unknown]
  - Crohn^s disease [Unknown]
  - Gastrointestinal injury [Unknown]
  - Gastrointestinal disorder [Unknown]
  - Colitis ulcerative [Unknown]
  - Inguinal hernia [Recovering/Resolving]
  - Hepatic enzyme increased [Recovered/Resolved]
  - Dry skin [Unknown]
  - Blood bilirubin increased [Recovered/Resolved]
  - Gastrooesophageal reflux disease [Unknown]
  - Oesophageal disorder [Unknown]
  - Ill-defined disorder [Unknown]
  - Dyspepsia [Unknown]
  - Pouchitis [Unknown]
  - Emotional distress [Unknown]
  - Carcinoembryonic antigen increased [Unknown]
  - Metaplasia [Unknown]
  - Anaemia [Recovered/Resolved]
